FAERS Safety Report 6070958-6 (Version None)
Quarter: 2009Q1

REPORT INFORMATION
  Report Type: 
  Country: None (occurrence: None)
  Receive Date: 20090209
  Receipt Date: 20090203
  Transmission Date: 20090719
  Serious: Yes (Hospitalization, Congenital Anomaly)
  Sender: FDA-Public Use
  Company Number: A0746207A

PATIENT
  Sex: Female
  Weight: 1.4 kg

DRUGS (2)
  1. PAXIL [Suspect]
     Indication: DEPRESSION
     Dosage: 20MG UNKNOWN
     Dates: start: 20000401, end: 20000915
  2. GLUCOPHAGE [Concomitant]

REACTIONS (18)
  - CAESAREAN SECTION [None]
  - CARDIAC FAILURE CONGESTIVE [None]
  - CONGENITAL ANOMALY [None]
  - CYANOSIS [None]
  - DRUG EXPOSURE DURING PREGNANCY [None]
  - FAILURE TO THRIVE [None]
  - FEEDING DISORDER NEONATAL [None]
  - HYPOGLYCAEMIA [None]
  - PHARYNGEAL DISORDER [None]
  - PREMATURE BABY [None]
  - PULMONARY VALVE INCOMPETENCE [None]
  - SEPSIS NEONATAL [None]
  - SPLENOMEGALY [None]
  - TACHYPNOEA [None]
  - TRICUSPID VALVE INCOMPETENCE [None]
  - VELO-CARDIO-FACIAL SYNDROME [None]
  - VENTRICULAR HYPERTROPHY [None]
  - VENTRICULAR SEPTAL DEFECT [None]
